FAERS Safety Report 17186945 (Version 1)
Quarter: 2019Q4

REPORT INFORMATION
  Report Type: Report from Study
  Country: US (occurrence: US)
  Receive Date: 20191220
  Receipt Date: 20191220
  Transmission Date: 20200122
  Serious: Yes (Hospitalization)
  Sender: FDA-Public Use
  Company Number: US-ACTELION-A-NJ2018-167488

PATIENT
  Age: 49 Year
  Sex: Female

DRUGS (2)
  1. OPSUMIT [Suspect]
     Active Substance: MACITENTAN
     Indication: PULMONARY ARTERIAL HYPERTENSION
     Dosage: 10 MG, QD
     Route: 048
     Dates: start: 201712
  2. ADEMPAS [Suspect]
     Active Substance: RIOCIGUAT
     Indication: PRODUCT USED FOR UNKNOWN INDICATION
     Dosage: UNK
     Route: 065
     Dates: start: 201712

REACTIONS (14)
  - Product dose omission [Recovered/Resolved]
  - Chest pain [Not Recovered/Not Resolved]
  - Dry eye [Recovered/Resolved]
  - Memory impairment [Recovered/Resolved]
  - Hypotension [Not Recovered/Not Resolved]
  - Neck pain [Not Recovered/Not Resolved]
  - Pain [Not Recovered/Not Resolved]
  - Eye pruritus [Recovered/Resolved]
  - Hospitalisation [Unknown]
  - Visual impairment [Unknown]
  - Headache [Recovered/Resolved]
  - Respiratory tract infection [Unknown]
  - Eye irritation [Recovered/Resolved]
  - Feeling abnormal [Unknown]

NARRATIVE: CASE EVENT DATE: 201801
